FAERS Safety Report 5677181-5 (Version None)
Quarter: 2008Q1

REPORT INFORMATION
  Report Type: 
  Country: None (occurrence: None)
  Receive Date: 20080324
  Receipt Date: 20080319
  Transmission Date: 20080703
  Serious: Yes (Death)
  Sender: FDA-Public Use
  Company Number: B0513470A

PATIENT
  Sex: Female

DRUGS (1)
  1. HYCAMTIN [Suspect]
     Indication: OVARIAN CANCER METASTATIC
     Dosage: 1.5MGM2 PER DAY
     Route: 042
     Dates: start: 20080225, end: 20080228

REACTIONS (1)
  - NEUTROPENIC SEPSIS [None]
